FAERS Safety Report 15291928 (Version 1)
Quarter: 2018Q3

REPORT INFORMATION
  Report Type: Report from Study
  Country: None (occurrence: IE)
  Receive Date: 20180817
  Receipt Date: 20180817
  Transmission Date: 20181010
  Serious: Yes (Hospitalization, Other)
  Sender: FDA-Public Use
  Company Number: IE-BIOVERATIV-2018BV000572

PATIENT
  Age: 4 Year
  Sex: Male
  Weight: 20 kg

DRUGS (10)
  1. PARACETAMOL [Concomitant]
     Active Substance: ACETAMINOPHEN
     Indication: CENTRAL VENOUS CATHETER REMOVAL
     Dosage: ONCE
     Route: 042
     Dates: start: 20180808, end: 20180808
  2. CO?AMOXICAV [Concomitant]
     Indication: CENTRAL VENOUS CATHETER REMOVAL
     Dosage: ONCE
     Route: 042
     Dates: start: 20180808, end: 20180808
  3. ONDANSETRON [Concomitant]
     Active Substance: ONDANSETRON
     Indication: CENTRAL VENOUS CATHETER REMOVAL
     Dosage: ONCE
     Route: 042
     Dates: start: 20180808, end: 20180808
  4. ANTIHEMOPHILIC FACTOR (RECOMBINANT), FC FUSION PROTEIN [Suspect]
     Active Substance: (1-743)-(1638-2332)-BLOOD-COAGULATION FACTOR VIII (SYNTHETIC HUMAN) FUSION PROTEIN WITH IMMUNOGLOBULIN G1 (SYNTHETIC HUMAN FC DOMAIN FRAGMENT), (1444-6^),(1447-9^)-BIS(DISULFIDE) WITH IMMUNOGLOBULIN G1 (SYNTHETIC HUMAN FC DOMAIN FRAGMENT)
     Route: 042
     Dates: start: 20180808
  5. PROPOFOL. [Concomitant]
     Active Substance: PROPOFOL
     Indication: CENTRAL VENOUS CATHETER REMOVAL
     Dosage: ONCE
     Route: 042
     Dates: start: 20180808, end: 20180808
  6. LIGNOCAINE [Concomitant]
     Active Substance: LIDOCAINE HYDROCHLORIDE
     Indication: CENTRAL VENOUS CATHETER REMOVAL
     Route: 048
     Dates: start: 20180808
  7. MOVICOL [Concomitant]
     Active Substance: POLYETHYLENE GLYCOL 3350\POTASSIUM CHLORIDE\SODIUM BICARBONATE\SODIUM CHLORIDE
     Indication: CENTRAL VENOUS CATHETER REMOVAL
     Dosage: ONCE
     Route: 042
     Dates: start: 20180808, end: 20180808
  8. ANTIHEMOPHILIC FACTOR (RECOMBINANT), FC FUSION PROTEIN [Suspect]
     Active Substance: (1-743)-(1638-2332)-BLOOD-COAGULATION FACTOR VIII (SYNTHETIC HUMAN) FUSION PROTEIN WITH IMMUNOGLOBULIN G1 (SYNTHETIC HUMAN FC DOMAIN FRAGMENT), (1444-6^),(1447-9^)-BIS(DISULFIDE) WITH IMMUNOGLOBULIN G1 (SYNTHETIC HUMAN FC DOMAIN FRAGMENT)
     Indication: FACTOR VIII DEFICIENCY
     Route: 042
     Dates: start: 20180807
  9. TRAC [Concomitant]
     Indication: CENTRAL VENOUS CATHETER REMOVAL
     Dosage: ONCE
     Route: 042
     Dates: start: 20180808, end: 20180808
  10. FENTANYL. [Concomitant]
     Active Substance: FENTANYL
     Indication: CENTRAL VENOUS CATHETER REMOVAL
     Dosage: ONCE
     Route: 042
     Dates: start: 20180808, end: 20180808

REACTIONS (1)
  - Infection [Not Recovered/Not Resolved]

NARRATIVE: CASE EVENT DATE: 20180805
